FAERS Safety Report 17758179 (Version 1)
Quarter: 2020Q2

REPORT INFORMATION
  Report Type: Spontaneous
  Country: IT (occurrence: IT)
  Receive Date: 20200507
  Receipt Date: 20200507
  Transmission Date: 20200714
  Serious: Yes (Other)
  Sender: FDA-Public Use
  Company Number: NVSC2020IT123400

PATIENT
  Age: 52 Year
  Sex: Male
  Weight: 98 kg

DRUGS (1)
  1. IBUPROFEN. [Suspect]
     Active Substance: IBUPROFEN
     Indication: NECK PAIN
     Dosage: 1200 MG, QD
     Route: 048
     Dates: start: 20200110, end: 20200124

REACTIONS (2)
  - Jaundice cholestatic [Recovering/Resolving]
  - Hypertransaminasaemia [Recovering/Resolving]

NARRATIVE: CASE EVENT DATE: 20200205
